FAERS Safety Report 11157383 (Version 1)
Quarter: 2015Q2

REPORT INFORMATION
  Report Type: Spontaneous
  Country: BR (occurrence: BR)
  Receive Date: 20150603
  Receipt Date: 20150603
  Transmission Date: 20150821
  Serious: Yes (Other)
  Sender: FDA-Public Use
  Company Number: PHHY2015BR063124

PATIENT
  Sex: Female
  Weight: 62 kg

DRUGS (2)
  1. VOLTAREN [Suspect]
     Active Substance: DICLOFENAC SODIUM
     Indication: SPINAL PAIN
     Dosage: 2 DF, QD (2 SUPPOSITORIES DAILY FOR 3 DAYS)
     Route: 054
     Dates: start: 2006
  2. AEROLIN [Concomitant]
     Active Substance: ALBUTEROL
     Indication: ASTHMA
     Dosage: UNK UNK, PRN (SPORADICALLY DEPENDING ON THE NEED)
     Route: 048

REACTIONS (4)
  - Ligament sprain [Unknown]
  - Back pain [Recovering/Resolving]
  - Bone disorder [Unknown]
  - Metastases to breast [Recovered/Resolved]

NARRATIVE: CASE EVENT DATE: 2006
